FAERS Safety Report 24937912 (Version 2)
Quarter: 2025Q1

REPORT INFORMATION
  Report Type: Spontaneous
  Country: AT (occurrence: AT)
  Receive Date: 20250206
  Receipt Date: 20250219
  Transmission Date: 20250409
  Serious: Yes (Other)
  Sender: AMGEN
  Company Number: AT-AMGEN-AUTSP2025018863

PATIENT
  Age: 26 Year
  Sex: Female

DRUGS (21)
  1. NPLATE [Suspect]
     Active Substance: ROMIPLOSTIM
     Indication: Immune thrombocytopenia
     Dosage: 10 MICROGRAM/KILOGRAM, QWK FOR SIX MONTHS
     Route: 065
     Dates: start: 2010
  2. NPLATE [Suspect]
     Active Substance: ROMIPLOSTIM
     Dosage: 5 MICROGRAM/KILOGRAM, QWK
     Route: 065
     Dates: start: 20210528
  3. NPLATE [Suspect]
     Active Substance: ROMIPLOSTIM
     Dosage: 8 MICROGRAM/KILOGRAM, QWK
     Route: 065
     Dates: end: 20230322
  4. NPLATE [Suspect]
     Active Substance: ROMIPLOSTIM
     Dosage: 3 MICROGRAM/KILOGRAM, QWK
     Route: 065
     Dates: start: 20231121
  5. NPLATE [Suspect]
     Active Substance: ROMIPLOSTIM
     Dosage: 10 MICROGRAM/KILOGRAM, QWK
     Route: 065
     Dates: start: 20240208
  6. PREDNISOLONE [Concomitant]
     Active Substance: PREDNISOLONE
  7. TACROLIMUS [Concomitant]
     Active Substance: TACROLIMUS
     Dosage: 3-0-0 QD
  8. AZATHIOPRINE [Concomitant]
     Active Substance: AZATHIOPRINE
  9. BUDESONIDE [Concomitant]
     Active Substance: BUDESONIDE
     Dates: start: 20200128
  10. PREDNISOLONE [Concomitant]
     Active Substance: PREDNISOLONE
  11. PREDNISOLONE [Concomitant]
     Active Substance: PREDNISOLONE
  12. PRIVIGEN [Concomitant]
     Active Substance: HUMAN IMMUNOGLOBULIN G
  13. PRIVIGEN [Concomitant]
     Active Substance: HUMAN IMMUNOGLOBULIN G
     Dosage: 30 GRAM, QWK
  14. PREDNISOLONE [Concomitant]
     Active Substance: PREDNISOLONE
  15. PREDNISOLONE [Concomitant]
     Active Substance: PREDNISOLONE
  16. PREDNISOLONE [Concomitant]
     Active Substance: PREDNISOLONE
  17. PREDNISOLONE [Concomitant]
     Active Substance: PREDNISOLONE
  18. ELTROMBOPAG OLAMINE [Concomitant]
     Active Substance: ELTROMBOPAG OLAMINE
     Dosage: 25 MILLIGRAM, QD
     Dates: start: 20200128
  19. THROMBOPOIETIN [Concomitant]
     Active Substance: THROMBOPOIETIN
  20. CORTISONE [Concomitant]
     Active Substance: CORTISONE
  21. HUMAN IMMUNOGLOBULIN G [Concomitant]
     Active Substance: HUMAN IMMUNOGLOBULIN G
     Dosage: UNK, QWK
     Route: 040

REACTIONS (7)
  - Haematochezia [Unknown]
  - Platelet count decreased [Unknown]
  - Maternal exposure during pregnancy [Unknown]
  - Intermenstrual bleeding [Unknown]
  - Gastroenteritis [Unknown]
  - Infection [Unknown]
  - Splenectomy [Unknown]

NARRATIVE: CASE EVENT DATE: 20190502
